FAERS Safety Report 8430292-3 (Version None)
Quarter: 2012Q2

REPORT INFORMATION
  Report Type: 
  Country: None (occurrence: None)
  Receive Date: 20120612
  Receipt Date: 20120530
  Transmission Date: 20120825
  Serious: Yes (Other)
  Sender: FDA-Public Use
  Company Number: US-ELI_LILLY_AND_COMPANY-US201206000081

PATIENT
  Sex: Female

DRUGS (1)
  1. CYMBALTA [Suspect]
     Indication: FIBROMYALGIA
     Dosage: 60 MG, QD
     Dates: start: 20050101

REACTIONS (7)
  - HYPERTENSION [None]
  - NEPHRECTOMY [None]
  - INTENTIONAL DRUG MISUSE [None]
  - HYSTERECTOMY [None]
  - DRUG WITHDRAWAL SYNDROME [None]
  - VOMITING [None]
  - INTESTINAL OPERATION [None]
